FAERS Safety Report 6691610-X (Version None)
Quarter: 2010Q2

REPORT INFORMATION
  Report Type: 
  Country: None (occurrence: None)
  Receive Date: 20100422
  Receipt Date: 20100409
  Transmission Date: 20101027
  Serious: Yes (Other)
  Sender: FDA-Public Use
  Company Number: PHHY2010TR23013

PATIENT
  Age: 30 Year
  Sex: Male

DRUGS (1)
  1. DICLOFENAC [Suspect]
     Indication: PAIN
     Route: 030

REACTIONS (8)
  - DEBRIDEMENT [None]
  - EMBOLIA CUTIS MEDICAMENTOSA [None]
  - INJECTION SITE ERYTHEMA [None]
  - INJECTION SITE EXTRAVASATION [None]
  - INJECTION SITE INDURATION [None]
  - INJECTION SITE NECROSIS [None]
  - SKIN EXFOLIATION [None]
  - SKIN GRAFT [None]
